FAERS Safety Report 10502340 (Version 2)
Quarter: 2014Q4

REPORT INFORMATION
  Report Type: Spontaneous
  Country: IT (occurrence: IT)
  Receive Date: 20141007
  Receipt Date: 20141013
  Transmission Date: 20150528
  Serious: Yes (Hospitalization)
  Sender: FDA-Public Use
  Company Number: IT-TEVA-513188ISR

PATIENT
  Age: 45 Year
  Sex: Male

DRUGS (1)
  1. PACLITAXEL TEVA [Suspect]
     Active Substance: PACLITAXEL
     Indication: ADENOCARCINOMA GASTRIC
     Dosage: 1 DOSAGE FORMS DAILY;
     Route: 042
     Dates: start: 20140930, end: 20140930

REACTIONS (4)
  - Product use issue [Recovering/Resolving]
  - Dyspnoea [Recovering/Resolving]
  - Flushing [Recovering/Resolving]
  - Muscle spasms [Recovering/Resolving]

NARRATIVE: CASE EVENT DATE: 20140930
